FAERS Safety Report 6496993-1 (Version None)
Quarter: 2009Q4

REPORT INFORMATION
  Report Type: 
  Country: None (occurrence: None)
  Receive Date: 20091215
  Receipt Date: 20090218
  Transmission Date: 20100525
  Serious: No
  Sender: FDA-Public Use
  Company Number: A0759724A

PATIENT
  Age: 75 Year
  Sex: Male

DRUGS (5)
  1. AVODART [Suspect]
     Indication: BENIGN PROSTATIC HYPERPLASIA
     Dosage: .5MG PER DAY
     Route: 048
     Dates: start: 20070501, end: 20081101
  2. ZOCOR [Concomitant]
  3. NIASPAN [Concomitant]
  4. GLIPIZIDE [Concomitant]
  5. BENAZEPRIL HYDROCHLORIDE [Concomitant]

REACTIONS (2)
  - BREAST SWELLING [None]
  - BREAST TENDERNESS [None]
